FAERS Safety Report 8504046-3 (Version None)
Quarter: 2012Q3

REPORT INFORMATION
  Report Type: 
  Country: None (occurrence: None)
  Receive Date: 20120711
  Receipt Date: 20120703
  Transmission Date: 20120928
  Serious: Yes (Other)
  Sender: FDA-Public Use
  Company Number: CA-BRISTOL-MYERS SQUIBB COMPANY-16650145

PATIENT
  Age: 21 Year
  Sex: Female

DRUGS (1)
  1. ABILIFY [Suspect]
     Indication: BIPOLAR DISORDER
     Dosage: STRTED 2 MG ON AN UNK DATE 15-MAY-2012:STARTED 5MG DAILY
     Route: 048
     Dates: start: 20120501, end: 20120527

REACTIONS (1)
  - MYOPIA [None]
